FAERS Safety Report 21234830 (Version 5)
Quarter: 2025Q1

REPORT INFORMATION
  Report Type: Report from Study
  Country: US (occurrence: US)
  Receive Date: 20220820
  Receipt Date: 20250103
  Transmission Date: 20250409
  Serious: Yes (Hospitalization, Other)
  Sender: TAKEDA
  Company Number: US-TAKEDA-US201701661

PATIENT
  Age: 26 Year
  Sex: Male

DRUGS (4)
  1. IDURSULFASE [Suspect]
     Active Substance: IDURSULFASE
     Indication: Mucopolysaccharidosis II
     Dosage: 30 MILLIGRAM, 1/WEEK
     Dates: start: 20060928
  2. IDURSULFASE [Suspect]
     Active Substance: IDURSULFASE
     Dosage: UNK UNK, 1/WEEK
     Dates: start: 20061030
  3. IDURSULFASE [Suspect]
     Active Substance: IDURSULFASE
  4. IDURSULFASE [Suspect]
     Active Substance: IDURSULFASE
     Dosage: UNK, 1/WEEK

REACTIONS (11)
  - Pneumonia [Recovered/Resolved]
  - Orchitis [Not Recovered/Not Resolved]
  - Insomnia [Unknown]
  - Muscle spasms [Unknown]
  - Tongue discolouration [Unknown]
  - Eye movement disorder [Unknown]
  - Stenosis [Not Recovered/Not Resolved]
  - Product storage error [Recovering/Resolving]
  - Product dose omission issue [Recovering/Resolving]
  - Cough [Recovering/Resolving]
  - Pyrexia [Unknown]

NARRATIVE: CASE EVENT DATE: 20220817
